FAERS Safety Report 20111586 (Version 2)
Quarter: 2021Q4

REPORT INFORMATION
  Report Type: Spontaneous
  Country: US (occurrence: US)
  Receive Date: 20211125
  Receipt Date: 20211206
  Transmission Date: 20220303
  Serious: Yes (Other)
  Sender: FDA-Public Use
  Company Number: US-AMGEN-USASP2021183410

PATIENT
  Age: 57 Year
  Sex: Female

DRUGS (4)
  1. OTEZLA [Suspect]
     Active Substance: APREMILAST
     Indication: Psoriatic arthropathy
     Dosage: 30 MILLIGRAM, BID
     Route: 048
     Dates: start: 20210216
  2. HYDROCORTISONE [Concomitant]
     Active Substance: HYDROCORTISONE
  3. PREDNISONE [Concomitant]
     Active Substance: PREDNISONE
  4. SULFASALAZINE [Concomitant]
     Active Substance: SULFASALAZINE

REACTIONS (2)
  - Psoriatic arthropathy [Not Recovered/Not Resolved]
  - Therapeutic product effect decreased [Unknown]

NARRATIVE: CASE EVENT DATE: 20210101
